FAERS Safety Report 7367888-6 (Version None)
Quarter: 2011Q1

REPORT INFORMATION
  Report Type: 
  Country: None (occurrence: None)
  Receive Date: 20110322
  Receipt Date: 20110318
  Transmission Date: 20110831
  Serious: Yes (Other)
  Sender: FDA-Public Use
  Company Number: US-ABBOTT-11P-163-0712848-00

PATIENT
  Age: 28 Year
  Sex: Female

DRUGS (3)
  1. LEXIVA [Suspect]
     Indication: ANTIRETROVIRAL THERAPY
     Route: 048
  2. NORVIR [Suspect]
     Indication: ANTIRETROVIRAL THERAPY
     Route: 048
  3. TRUVADA [Suspect]
     Indication: ANTIRETROVIRAL THERAPY
     Dosage: 1 TABLET/CAPSULE
     Route: 048

REACTIONS (1)
  - BLIGHTED OVUM [None]
